FAERS Safety Report 9999423 (Version 1)
Quarter: 2014Q1

REPORT INFORMATION
  Report Type: Spontaneous
  Country: US (occurrence: US)
  Receive Date: 20140312
  Receipt Date: 20140312
  Transmission Date: 20141002
  Serious: Yes (Hospitalization, Other)
  Sender: FDA-Public Use
  Company Number: US-BAXTER-2014BAX012115

PATIENT
  Sex: Male

DRUGS (2)
  1. DIANEAL PD2 (ULTRABAG) [Suspect]
     Indication: NEPHROPATHY
     Route: 033
     Dates: start: 201311
  2. DIANEAL PD2 (ULTRABAG) [Suspect]
     Indication: NEPHROPATHY
     Route: 033
     Dates: start: 201311

REACTIONS (2)
  - Myocardial infarction [Recovered/Resolved with Sequelae]
  - Muscular weakness [Not Recovered/Not Resolved]
